FAERS Safety Report 8937173 (Version 1)
Quarter: 2012Q4

REPORT INFORMATION
  Report Type: Spontaneous
  Country: GB (occurrence: None)
  Receive Date: 20121121
  Receipt Date: 20121121
  Transmission Date: 20130627
  Serious: Yes (Hospitalization)
  Sender: FDA-Public Use
  Company Number: GER/UKI/12/0026662

PATIENT
  Age: 24 Year
  Sex: Male

DRUGS (2)
  1. LAMOTRIGINE (LAMOTRIGINE) [Suspect]
     Indication: EPILEPSY
  2. CLOBAZAM [Suspect]
     Dosage: as required

REACTIONS (4)
  - Suicide attempt [None]
  - Intentional overdose [None]
  - Feeling of despair [None]
  - Epilepsy [None]
